FAERS Safety Report 20508620 (Version 1)
Quarter: 2022Q1

REPORT INFORMATION
  Report Type: Spontaneous
  Country: US (occurrence: US)
  Receive Date: 20220223
  Receipt Date: 20220223
  Transmission Date: 20220423
  Serious: Yes (Hospitalization, Other)
  Sender: FDA-Public Use
  Company Number: US-ELI_LILLY_AND_COMPANY-US202202005974

PATIENT
  Sex: Male

DRUGS (1)
  1. TRULICITY [Suspect]
     Active Substance: DULAGLUTIDE
     Indication: Type 2 diabetes mellitus
     Dosage: 1.5 MG, UNKNOWN
     Route: 065
     Dates: start: 2018, end: 202202

REACTIONS (16)
  - Fall [Unknown]
  - Heart rate abnormal [Unknown]
  - Blood pressure abnormal [Unknown]
  - Muscular weakness [Unknown]
  - Spinal stenosis [Unknown]
  - Muscular weakness [Unknown]
  - Fear of falling [Unknown]
  - Dizziness [Unknown]
  - Fall [Unknown]
  - Skin disorder [Unknown]
  - Discomfort [Unknown]
  - Hunger [Unknown]
  - Gait disturbance [Unknown]
  - Rash pruritic [Unknown]
  - Rash erythematous [Unknown]
  - Asthenia [Unknown]

NARRATIVE: CASE EVENT DATE: 20200101
